FAERS Safety Report 6228500-2 (Version None)
Quarter: 2009Q2

REPORT INFORMATION
  Report Type: 
  Country: None (occurrence: None)
  Receive Date: 20090612
  Receipt Date: 20090605
  Transmission Date: 20091009
  Serious: Yes (Hospitalization)
  Sender: FDA-Public Use
  Company Number: US-ELI_LILLY_AND_COMPANY-US200906001867

PATIENT
  Sex: Female

DRUGS (2)
  1. FORTEO [Suspect]
  2. TEGRETOL [Concomitant]
     Indication: CONVULSION

REACTIONS (1)
  - CONTUSION [None]
